FAERS Safety Report 6157205-1 (Version None)
Quarter: 2009Q2

REPORT INFORMATION
  Report Type: 
  Country: None (occurrence: None)
  Receive Date: 20090413
  Receipt Date: 20090324
  Transmission Date: 20091009
  Serious: Yes (Life-Threatening)
  Sender: FDA-Public Use
  Company Number: 235794

PATIENT
  Age: 57 Year
  Sex: Female

DRUGS (10)
  1. KETALAR [Suspect]
     Indication: PAIN
     Dosage: 100 MG, INTRAVENOUS
     Route: 042
     Dates: start: 20080514, end: 20080515
  2. MORPHINE [Suspect]
     Indication: PAIN
     Dosage: 360 MG INTRAMUSCULAR
     Route: 030
     Dates: start: 20080516
  3. (FENAC /00372302/) [Suspect]
     Indication: PAIN
     Dosage: 100 MG, ORAL
     Route: 048
     Dates: start: 20070209
  4. METHADONE HCL [Suspect]
     Indication: PAIN
     Dosage: 100 MG, ORAL
     Route: 048
     Dates: start: 20060215
  5. PROTHIADEN [Suspect]
     Indication: DRUG USE FOR UNKNOWN INDICATION
     Dosage: 75 MG, ORAL
     Route: 048
     Dates: start: 20050215
  6. DILTIAZEM HYDROCHLORIDE [Concomitant]
  7. METHADONE HCL [Concomitant]
  8. (OSTELIN /00107901/) [Concomitant]
  9. PROTOSTAT [Concomitant]
  10. (STAPHYLEX /00239102/) [Concomitant]

REACTIONS (6)
  - HEADACHE [None]
  - INFUSION RELATED REACTION [None]
  - MORBID THOUGHTS [None]
  - NAUSEA [None]
  - PYREXIA [None]
  - RETCHING [None]
